FAERS Safety Report 4505303-8 (Version None)
Quarter: 2004Q4

REPORT INFORMATION
  Report Type: 
  Country: None (occurrence: None)
  Receive Date: 20041119
  Receipt Date: 20041112
  Transmission Date: 20050328
  Serious: Yes (Other)
  Sender: FDA-Public Use
  Company Number: US-BRISTOL-MYERS SQUIBB COMPANY-12764767

PATIENT
  Age: 74 Year
  Sex: Male
  Weight: 80 kg

DRUGS (4)
  1. CETUXIMAB [Suspect]
     Indication: PANCREATIC CARCINOMA
     Dosage: 1ST ON 17-SEPT-04,COURSE 2 BEGAN 22-OCT-04, 483 MG/WK. TOTAL DOSE 1449MG THIS COURSE
     Route: 042
     Dates: start: 20041105, end: 20041105
  2. DOCETAXEL [Suspect]
     Indication: PANCREATIC CARCINOMA
     Dosage: THERAPY INITIATED 17-SEPT-04,
     Dates: start: 20041029, end: 20041029
  3. IRINOTECAN [Suspect]
     Indication: PANCREATIC CARCINOMA
     Dates: start: 20041029, end: 20041029
  4. LOVENOX [Concomitant]
     Dates: start: 20041104, end: 20041104

REACTIONS (2)
  - HYPERKALAEMIA [None]
  - HYPONATRAEMIA [None]
